FAERS Safety Report 6045038-6 (Version None)
Quarter: 2009Q1

REPORT INFORMATION
  Report Type: 
  Country: None (occurrence: None)
  Receive Date: 20090116
  Receipt Date: 20090116
  Transmission Date: 20090719
  Serious: No
  Sender: FDA-Public Use
  Company Number: None

PATIENT
  Age: 83 Year
  Sex: Male
  Weight: 70 kg

DRUGS (3)
  1. VARENICLINE [Suspect]
     Indication: TOBACCO ABUSE
     Dosage: 2 MG BID PO
     Route: 048
     Dates: start: 20071208, end: 20071231
  2. .. [Concomitant]
  3. OLANZAPINE [Suspect]
     Indication: PSYCHOTIC DISORDER
     Dosage: 7.5 MG ORAL
     Route: 048
     Dates: start: 20080901

REACTIONS (1)
  - HALLUCINATION [None]
